FAERS Safety Report 23565192 (Version 1)
Quarter: 2024Q1

REPORT INFORMATION
  Report Type: Spontaneous
  Country: US (occurrence: None)
  Receive Date: 20240223
  Receipt Date: 20240223
  Transmission Date: 20240410
  Serious: No
  Sender: FDA-Public Use
  Company Number: None

PATIENT
  Sex: Female

DRUGS (1)
  1. PROMACTA [Suspect]
     Active Substance: ELTROMBOPAG OLAMINE
     Indication: Nephrogenic anaemia

REACTIONS (5)
  - Emergency care [None]
  - Dialysis [None]
  - Inflammation [None]
  - Toe amputation [None]
  - Therapy interrupted [None]
